FAERS Safety Report 11445652 (Version 1)
Quarter: 2015Q3

REPORT INFORMATION
  Report Type: Spontaneous
  Country: US (occurrence: None)
  Receive Date: 20150901
  Receipt Date: 20150901
  Transmission Date: 20151125
  Serious: No
  Sender: FDA-Public Use
  Company Number: None

PATIENT
  Age: 75 Year
  Sex: Male
  Weight: 81.65 kg

DRUGS (11)
  1. CITTRACAL [Concomitant]
  2. ALPHAGAN P [Concomitant]
     Active Substance: BRIMONIDINE TARTRATE
  3. FINASTERIDE. [Concomitant]
     Active Substance: FINASTERIDE
  4. OMEPRAZOLE. [Concomitant]
     Active Substance: OMEPRAZOLE
  5. CPAP MACHINE [Concomitant]
  6. XALATAN [Concomitant]
     Active Substance: LATANOPROST
  7. UNISOM SLEEPTABS [Suspect]
     Active Substance: DOXYLAMINE SUCCINATE
     Dosage: AT BADTIME, TAKEN BY MOUTH
     Dates: start: 20150827, end: 20150827
  8. ATORVASTATIN [Concomitant]
     Active Substance: ATORVASTATIN
  9. COLACE [Concomitant]
     Active Substance: DOCUSATE SODIUM
  10. TRAMADOL. [Concomitant]
     Active Substance: TRAMADOL
  11. CITRUCEL [Concomitant]
     Active Substance: METHYLCELLULOSE (4000 MPA.S)

REACTIONS (3)
  - Somnolence [None]
  - Drug effect prolonged [None]
  - Disorientation [None]

NARRATIVE: CASE EVENT DATE: 20150827
